FAERS Safety Report 4283628-1 (Version None)
Quarter: 2004Q1

REPORT INFORMATION
  Report Type: 
  Country: None (occurrence: None)
  Receive Date: 20040115
  Receipt Date: 20030313
  Transmission Date: 20041129
  Serious: Yes (Other)
  Sender: FDA-Public Use
  Company Number: NSADSS2003011705

PATIENT
  Age: 32 Year
  Sex: Female

DRUGS (2)
  1. DOXIL [Suspect]
     Indication: MALIGNANT HEPATOBILIARY NEOPLASM
     Dosage: 67 MG, 1 IN 28 DAY, INTRAVENOUS DRIP
     Route: 041
     Dates: start: 20021125, end: 20021223
  2. DECADRON [Concomitant]

REACTIONS (2)
  - CONDITION AGGRAVATED [None]
  - RASH [None]
